FAERS Safety Report 5705228-6 (Version None)
Quarter: 2008Q2

REPORT INFORMATION
  Report Type: 
  Country: None (occurrence: None)
  Receive Date: 20080411
  Receipt Date: 20080318
  Transmission Date: 20081010
  Serious: Yes (Hospitalization)
  Sender: FDA-Public Use
  Company Number: 080307230

PATIENT
  Age: 55 Year
  Sex: Female

DRUGS (13)
  1. MUCINEX [Suspect]
     Indication: INCREASED UPPER AIRWAY SECRETION
     Dosage: 1TABL, BID, ORAL
     Route: 048
     Dates: start: 20080122, end: 20080123
  2. ASPIRIN [Concomitant]
  3. FLEXERIL [Concomitant]
  4. TYLOX [Concomitant]
  5. WELCHOL [Concomitant]
  6. ESTRATEST [Concomitant]
  7. NEXIUM [Concomitant]
  8. TOPROL-XL [Concomitant]
  9. AMARYL [Concomitant]
  10. CADUET [Concomitant]
  11. CHANTIX [Concomitant]
  12. ALLERX [Concomitant]
  13. JANUVIA (SITAGLIPTIN) [Concomitant]

REACTIONS (7)
  - ASTHENIA [None]
  - BLOOD PRESSURE DECREASED [None]
  - DIZZINESS [None]
  - HEART RATE DECREASED [None]
  - NERVOUSNESS [None]
  - SYNCOPE [None]
  - VOMITING [None]
